FAERS Safety Report 4536118-2 (Version None)
Quarter: 2004Q4

REPORT INFORMATION
  Report Type: 
  Country: None (occurrence: None)
  Receive Date: 20041214
  Receipt Date: 20040615
  Transmission Date: 20050328
  Serious: Yes (Death)
  Sender: FDA-Public Use
  Company Number: 2004219396FR

PATIENT
  Age: 37 Year
  Sex: Female

DRUGS (3)
  1. XANAX [Suspect]
     Dosage: ORAL
     Route: 048
     Dates: start: 20031112, end: 20031112
  2. THERALENE(ALIMEMAZINE TARTRATE) [Suspect]
     Dosage: ORAL
     Route: 048
     Dates: start: 20031212, end: 20031112
  3. LEXOMIL(BROMAZEPAM) [Suspect]
     Dosage: ORAL
     Route: 048
     Dates: start: 20031112, end: 20031112

REACTIONS (1)
  - DEATH [None]
